FAERS Safety Report 25904537 (Version 1)
Quarter: 2025Q4

REPORT INFORMATION
  Report Type: Spontaneous
  Country: US (occurrence: US)
  Receive Date: 20251010
  Receipt Date: 20251010
  Transmission Date: 20260118
  Serious: No
  Sender: VERO BIOTECH
  Company Number: US-VEROBIOTECH-2025USVEROSPO00285

PATIENT

DRUGS (1)
  1. GENOSYL [Suspect]
     Active Substance: NITRIC OXIDE
     Indication: Product used for unknown indication
     Dosage: 10 PPM

REACTIONS (1)
  - Device issue [Unknown]
